FAERS Safety Report 13962457 (Version 5)
Quarter: 2020Q4

REPORT INFORMATION
  Report Type: Spontaneous
  Country: US (occurrence: US)
  Receive Date: 20170913
  Receipt Date: 20201229
  Transmission Date: 20210113
  Serious: Yes (Other)
  Sender: FDA-Public Use
  Company Number: US-ASTRAZENECA-2017SE91693

PATIENT
  Age: 74 Year
  Sex: Female
  Weight: 62.1 kg

DRUGS (31)
  1. LEVOTHYROXINE SODIUM. [Concomitant]
     Active Substance: LEVOTHYROXINE SODIUM
  2. OXYBUTYNIN. [Concomitant]
     Active Substance: OXYBUTYNIN CHLORIDE
  3. CEFDINIR. [Concomitant]
     Active Substance: CEFDINIR
  4. IBUPROFEN. [Concomitant]
     Active Substance: IBUPROFEN
  5. COMBIVENT [Concomitant]
     Active Substance: ALBUTEROL SULFATE\IPRATROPIUM BROMIDE
  6. PREMARIN [Concomitant]
     Active Substance: ESTROGENS, CONJUGATED
  7. PRILOSEC [Suspect]
     Active Substance: OMEPRAZOLE MAGNESIUM
     Indication: GASTROOESOPHAGEAL REFLUX DISEASE
     Route: 048
     Dates: start: 2016, end: 201609
  8. CEFUROXIME. [Concomitant]
     Active Substance: CEFUROXIME
  9. AMOXYCILLIN [Concomitant]
     Active Substance: AMOXICILLIN
  10. SMZ/TMP [Concomitant]
     Active Substance: SULFAMETHOXAZOLE\TRIMETHOPRIM
  11. TOLTERODINE TARTRATE. [Concomitant]
     Active Substance: TOLTERODINE TARTRATE
  12. METHYLPREDNISOLONE. [Concomitant]
     Active Substance: METHYLPREDNISOLONE
  13. NAPROXEN. [Concomitant]
     Active Substance: NAPROXEN
  14. DENAVIR [Concomitant]
     Active Substance: PENCICLOVIR
  15. PROPO-N/APAP [Concomitant]
  16. PRILOSEC OTC [Suspect]
     Active Substance: OMEPRAZOLE MAGNESIUM
     Indication: GASTROOESOPHAGEAL REFLUX DISEASE
     Route: 048
     Dates: start: 201603, end: 201609
  17. SULFACETAMIDE. [Concomitant]
     Active Substance: SULFACETAMIDE
  18. SULFACET [Concomitant]
     Active Substance: SULFACETAMIDE
  19. DETROL [Concomitant]
     Active Substance: TOLTERODINE TARTRATE
  20. DOXYCYCLINE HYCLATE. [Concomitant]
     Active Substance: DOXYCYCLINE HYCLATE
  21. AZITHROMYCIN ANHYDROUS. [Concomitant]
     Active Substance: AZITHROMYCIN ANHYDROUS
  22. NEOMYCIN. [Concomitant]
     Active Substance: NEOMYCIN
  23. CEPHALEXIN. [Concomitant]
     Active Substance: CEPHALEXIN
  24. AMLODIPINE BESYLATE. [Concomitant]
     Active Substance: AMLODIPINE BESYLATE
  25. CHLOROQUINE. [Concomitant]
     Active Substance: CHLOROQUINE
  26. LOSARTAN POTASSIUM. [Concomitant]
     Active Substance: LOSARTAN POTASSIUM
  27. BENZONATATE. [Concomitant]
     Active Substance: BENZONATATE
  28. ONDANSETRON [Concomitant]
     Active Substance: ONDANSETRON
  29. CIPROFLOXACIN. [Concomitant]
     Active Substance: CIPROFLOXACIN
  30. PREDNISOLONE. [Concomitant]
     Active Substance: PREDNISOLONE
  31. ACULAR [Concomitant]
     Active Substance: KETOROLAC TROMETHAMINE

REACTIONS (4)
  - Chronic kidney disease [Unknown]
  - Acute kidney injury [Unknown]
  - Renal injury [Unknown]
  - Tubulointerstitial nephritis [Unknown]

NARRATIVE: CASE EVENT DATE: 20160909
